FAERS Safety Report 7706251-2 (Version None)
Quarter: 2011Q3

REPORT INFORMATION
  Report Type: 
  Country: None (occurrence: None)
  Receive Date: 20110801
  Receipt Date: 20110517
  Transmission Date: 20111222
  Serious: Yes (Other)
  Sender: FDA-Public Use
  Company Number: AMAG201100128

PATIENT
  Sex: Female
  Weight: 141 kg

DRUGS (8)
  1. FERAHEME [Suspect]
     Indication: MENOMETRORRHAGIA
     Dosage: 10 ML (300 MG), SINGLE, INTRAVENOUS
     Route: 042
     Dates: start: 20110512, end: 20110512
  2. FERAHEME [Suspect]
     Indication: IRON DEFICIENCY ANAEMIA
     Dosage: 10 ML (300 MG), SINGLE, INTRAVENOUS
     Route: 042
     Dates: start: 20110512, end: 20110512
  3. VITAMIN B 12 (HYDROXOCOBALAMIN) [Concomitant]
  4. ASCORBIC ACID [Concomitant]
  5. OMEPRAZOLE [Concomitant]
  6. IRON (IRON) [Concomitant]
  7. LEVOTHYROXINE SODIUM [Concomitant]
  8. MAGNESIUM CHLORIDE (MAGNESIUM CHLORIDE ANHYDROUS) [Concomitant]

REACTIONS (6)
  - HYPERTENSION [None]
  - CHEST DISCOMFORT [None]
  - ABDOMINAL PAIN [None]
  - PRESYNCOPE [None]
  - FLUSHING [None]
  - DYSPNOEA [None]
